FAERS Safety Report 12758992 (Version 1)
Quarter: 2016Q3

REPORT INFORMATION
  Report Type: Spontaneous
  Country: IN (occurrence: IN)
  Receive Date: 20160919
  Receipt Date: 20160919
  Transmission Date: 20161109
  Serious: Yes (Other)
  Sender: FDA-Public Use
  Company Number: IN-CORDEN PHARMA LATINA S.P.A.-IN-2016COR000208

PATIENT
  Age: 22 Year
  Sex: Male

DRUGS (3)
  1. IFOSFAMIDE. [Suspect]
     Active Substance: IFOSFAMIDE
     Indication: HODGKIN^S DISEASE
     Dosage: UNK, [18 G TOTAL]
  2. CARBOPLATIN. [Suspect]
     Active Substance: CARBOPLATIN
     Indication: HODGKIN^S DISEASE
     Dosage: UNK
  3. ETOPOSIDE. [Concomitant]
     Active Substance: ETOPOSIDE
     Indication: HODGKIN^S DISEASE
     Dosage: UNK

REACTIONS (6)
  - Renal impairment [Unknown]
  - Hydronephrosis [Unknown]
  - Fanconi syndrome [Unknown]
  - Renal atrophy [Unknown]
  - Tubulointerstitial nephritis [Unknown]
  - Inflammation [Unknown]
